FAERS Safety Report 13414043 (Version 3)
Quarter: 2017Q2

REPORT INFORMATION
  Report Type: Spontaneous
  Country: CA (occurrence: CA)
  Receive Date: 20170407
  Receipt Date: 20170508
  Transmission Date: 20170830
  Serious: Yes (Other)
  Sender: FDA-Public Use
  Company Number: CA-TEVA-756126ACC

PATIENT
  Age: 71 Year
  Sex: Female

DRUGS (13)
  1. ADALAT [Concomitant]
     Active Substance: NIFEDIPINE
  2. AMIODARONE [Concomitant]
     Active Substance: AMIODARONE
  3. VITAMIN D [Concomitant]
     Active Substance: CHOLECALCIFEROL
  4. PRADAXA [Concomitant]
     Active Substance: DABIGATRAN ETEXILATE MESYLATE
  5. TEVA-AMOXICILLIN [Suspect]
     Active Substance: AMOXICILLIN
     Indication: INFLUENZA
     Dosage: 1500 MILLIGRAM DAILY; STRENGTH: 500MG. ONLY TOOK 1 DOSE LAST SUNDAY
     Dates: start: 20170326
  6. SPIRIVA [Concomitant]
     Active Substance: TIOTROPIUM BROMIDE MONOHYDRATE
  7. RISEDRONATE [Concomitant]
     Active Substance: RISEDRONATE SODIUM
  8. DYMISTA [Concomitant]
     Active Substance: AZELASTINE HYDROCHLORIDE\FLUTICASONE PROPIONATE
  9. TEVA-AMOXICILLIN [Suspect]
     Active Substance: AMOXICILLIN
     Indication: COUGH
  10. CALCIUM [Concomitant]
     Active Substance: CALCIUM
  11. TEVA-AMOXICILLIN [Suspect]
     Active Substance: AMOXICILLIN
     Indication: RHINORRHOEA
  12. ROSUVASTATIN. [Concomitant]
     Active Substance: ROSUVASTATIN
  13. ADVAIR HFA [Concomitant]
     Active Substance: FLUTICASONE PROPIONATE\SALMETEROL XINAFOATE

REACTIONS (5)
  - Haemorrhage [Recovered/Resolved]
  - Fall [Recovered/Resolved]
  - Pruritus [Recovered/Resolved]
  - Loss of consciousness [Recovered/Resolved]
  - Shock [Recovered/Resolved]

NARRATIVE: CASE EVENT DATE: 20170326
